FAERS Safety Report 8443842-8 (Version None)
Quarter: 2012Q2

REPORT INFORMATION
  Report Type: 
  Country: None (occurrence: None)
  Receive Date: 20120618
  Receipt Date: 20120614
  Transmission Date: 20120825
  Serious: Yes (Hospitalization)
  Sender: FDA-Public Use
  Company Number: US-BAYER-2012-048406

PATIENT
  Age: 32 Year
  Sex: Female
  Weight: 130.98 kg

DRUGS (12)
  1. GABAPENTIN [Concomitant]
     Indication: NEURALGIA
     Dosage: 300 MG, UNK
     Dates: start: 20111101
  2. DILAUDID [Concomitant]
  3. IXABEPILONE [Suspect]
     Indication: BREAST CANCER
     Dosage: DOSE: 70 MG
     Route: 042
     Dates: start: 20120229, end: 20120502
  4. LORTAB [Concomitant]
     Indication: PAIN
     Dosage: 10 MG, UNK
     Dates: start: 20110401
  5. COMPAZINE [Concomitant]
     Indication: NAUSEA
     Dosage: 10 MG, UNK
     Dates: start: 20100901
  6. SORAFENIB (RAF KINASE INHIBITOR) [Suspect]
     Indication: BREAST CANCER
     Dosage: 400 MG, BID
     Route: 048
     Dates: start: 20120229, end: 20120509
  7. AMBIEN [Concomitant]
     Indication: INSOMNIA
     Dosage: 5 MG, UNK
     Dates: start: 20100801
  8. METOPROLOL SUCCINATE [Concomitant]
     Indication: HYPERTENSION
     Dosage: 25 MG, UNK
     Dates: start: 20111001
  9. AMLODIPINE BESYLATE [Concomitant]
     Indication: HYPERTENSION
     Dosage: 10 MG, UNK
     Dates: start: 20111001
  10. LISINOPRIL [Concomitant]
     Indication: HYPERTENSION
     Dosage: 20 MG, UNK
     Dates: start: 20111001
  11. KEFLEX [Concomitant]
     Indication: ANTIBIOTIC PROPHYLAXIS
     Dosage: 500 MG, UNK
     Dates: start: 20120220
  12. BENADRYL [Concomitant]
     Indication: RASH

REACTIONS (1)
  - JUGULAR VEIN THROMBOSIS [None]
